FAERS Safety Report 8477285-8 (Version None)
Quarter: 2012Q2

REPORT INFORMATION
  Report Type: 
  Country: None (occurrence: None)
  Receive Date: 20120622
  Receipt Date: 20120615
  Transmission Date: 20120825
  Serious: Yes (Death)
  Sender: FDA-Public Use
  Company Number: ADR-2012-01141

PATIENT
  Age: 46 Year
  Sex: Female

DRUGS (3)
  1. BACLOFEN [Suspect]
     Indication: NEURITIS
  2. BACLOFEN [Suspect]
     Indication: PAIN
  3. MORPHINE [Concomitant]

REACTIONS (1)
  - DEATH [None]
